FAERS Safety Report 7333281-5 (Version None)
Quarter: 2011Q1

REPORT INFORMATION
  Report Type: 
  Country: None (occurrence: None)
  Receive Date: 20110304
  Receipt Date: 20110221
  Transmission Date: 20110831
  Serious: Yes (Other)
  Sender: FDA-Public Use
  Company Number: US-ELI_LILLY_AND_COMPANY-US201102006210

PATIENT
  Sex: Female

DRUGS (1)
  1. ZYPREXA [Suspect]
     Indication: RELAXATION THERAPY
     Dosage: 2.5 MG, DAILY (1/D)
     Dates: start: 20010101, end: 20110101

REACTIONS (7)
  - SKIN CANCER [None]
  - APATHY [None]
  - FEMUR FRACTURE [None]
  - OFF LABEL USE [None]
  - COLON CANCER [None]
  - ANTIBIOTIC RESISTANT STAPHYLOCOCCUS TEST POSITIVE [None]
  - CLOSTRIDIAL INFECTION [None]
